FAERS Safety Report 9831143 (Version 2)
Quarter: 2014Q1

REPORT INFORMATION
  Report Type: Spontaneous
  Country: US (occurrence: US)
  Receive Date: 20140121
  Receipt Date: 20140121
  Transmission Date: 20141002
  Serious: Yes (Other)
  Sender: FDA-Public Use
  Company Number: -SAAVPROD-CLOF-1002675

PATIENT
  Age: 77 Year
  Sex: Male
  Weight: 90.4 kg

DRUGS (9)
  1. CLOFARABINE [Suspect]
     Indication: ACUTE MYELOID LEUKAEMIA
     Dosage: 60 MG, QD, CYCLE 1; DAYS (1-5)
     Route: 042
     Dates: start: 20130516, end: 20130520
  2. CLOFARABINE [Suspect]
     Indication: ACUTE MYELOID LEUKAEMIA
     Dosage: QD, CYCLE 2; DAY (1-5)
     Route: 042
  3. ALLOPURINOL [Concomitant]
     Indication: PRODUCT USED FOR UNKNOWN INDICATION
     Dosage: 300 MG, QD
     Route: 065
     Dates: start: 20130514
  4. FLUCONAZOLE [Concomitant]
     Indication: PRODUCT USED FOR UNKNOWN INDICATION
     Dosage: 200 MG, QD
     Route: 065
     Dates: start: 20130514
  5. LISINOPRIL [Concomitant]
     Indication: PRODUCT USED FOR UNKNOWN INDICATION
     Dosage: 10 MG, QD
     Route: 065
     Dates: start: 20120927
  6. METFORMIN [Concomitant]
     Indication: PRODUCT USED FOR UNKNOWN INDICATION
     Dosage: 500 MG, BID
     Route: 065
  7. MACROGOL [Concomitant]
     Indication: PRODUCT USED FOR UNKNOWN INDICATION
     Dosage: 17 G, BID
     Route: 065
     Dates: start: 20120725
  8. SENNA ALEXANDRINA [Concomitant]
     Indication: PRODUCT USED FOR UNKNOWN INDICATION
     Dosage: 8.6 MG, BID
     Route: 065
     Dates: start: 20120725
  9. SIMVASTATIN [Concomitant]
     Indication: PRODUCT USED FOR UNKNOWN INDICATION
     Dosage: 40 MG, Q HS (EVERY HOUR OF SLEEP OR AT BEDTIME)
     Route: 065

REACTIONS (1)
  - Hypersensitivity [Recovered/Resolved]
